FAERS Safety Report 17248572 (Version 1)
Quarter: 2020Q1

REPORT INFORMATION
  Report Type: Spontaneous
  Country: RU (occurrence: RU)
  Receive Date: 20200108
  Receipt Date: 20200108
  Transmission Date: 20200409
  Serious: Yes (Hospitalization)
  Sender: FDA-Public Use
  Company Number: RU-BAYER-2020-002985

PATIENT
  Age: 39 Year
  Sex: Female

DRUGS (1)
  1. ULTRAVIST [Suspect]
     Active Substance: IOPROMIDE
     Indication: COMPUTERISED TOMOGRAM NECK
     Dosage: UNK

REACTIONS (2)
  - Feeling hot [Recovering/Resolving]
  - Hyperaemia [Recovering/Resolving]
